FAERS Safety Report 5587249-X (Version None)
Quarter: 2008Q1

REPORT INFORMATION
  Report Type: 
  Country: None (occurrence: None)
  Receive Date: 20080107
  Receipt Date: 20071224
  Transmission Date: 20080703
  Serious: Yes (Other)
  Sender: FDA-Public Use
  Company Number: 2007S1013715

PATIENT
  Age: 28 Year

DRUGS (2)
  1. CO-CODAMOL (PANADEINE CO) [Suspect]
  2. DICLOFENAC (DICLOFENAC) [Concomitant]

REACTIONS (1)
  - DYSTONIA [None]
